FAERS Safety Report 6755566-3 (Version None)
Quarter: 2010Q2

REPORT INFORMATION
  Report Type: 
  Country: None (occurrence: None)
  Receive Date: 20100602
  Receipt Date: 20100525
  Transmission Date: 20101027
  Serious: Yes (Disabling)
  Sender: FDA-Public Use
  Company Number: FR-1182024

PATIENT
  Age: 88 Year
  Sex: Female

DRUGS (1)
  1. MAXITROL [Suspect]
     Dosage: OPHTHALMIC
     Route: 047

REACTIONS (1)
  - DEAFNESS [None]
